FAERS Safety Report 5623443-7 (Version None)
Quarter: 2008Q1

REPORT INFORMATION
  Report Type: 
  Country: None (occurrence: None)
  Receive Date: 20080212
  Receipt Date: 20080204
  Transmission Date: 20080703
  Serious: Yes (Hospitalization)
  Sender: FDA-Public Use
  Company Number: FR-PFIZER INC-2008000017

PATIENT
  Sex: Female
  Weight: 68 kg

DRUGS (10)
  1. SU-011,248 [Suspect]
     Indication: BREAST CANCER
     Route: 048
     Dates: start: 20071219, end: 20071227
  2. CAPECITABINE [Suspect]
     Indication: BREAST CANCER
     Route: 048
     Dates: start: 20071108, end: 20071213
  3. LEXOMIL [Concomitant]
     Route: 048
  4. SKENAN [Concomitant]
     Route: 048
     Dates: start: 20071214, end: 20071219
  5. ACTISKENAN [Concomitant]
     Route: 048
     Dates: start: 20071214
  6. DURAGESIC-100 [Concomitant]
     Route: 062
     Dates: start: 20071220
  7. AUGMENTIN '250' [Concomitant]
     Route: 048
     Dates: start: 20071223
  8. SOLUPRED [Concomitant]
     Route: 048
     Dates: start: 20071214, end: 20071214
  9. DUPHALAC [Concomitant]
     Route: 048
     Dates: start: 20071201
  10. ZOMETA [Concomitant]
     Route: 042
     Dates: start: 20071219

REACTIONS (1)
  - FEMUR FRACTURE [None]
